FAERS Safety Report 5343749-9 (Version None)
Quarter: 2007Q2

REPORT INFORMATION
  Report Type: 
  Country: None (occurrence: None)
  Receive Date: 20070531
  Receipt Date: 20070531
  Transmission Date: 20071010
  Serious: Yes (Life-Threatening)
  Sender: FDA-Public Use
  Company Number: None

PATIENT
  Sex: Female
  Weight: 136.0791 kg

DRUGS (2)
  1. LEVAQUIN [Suspect]
     Indication: SINUSITIS
     Dosage: 500 MG QD ORALLY
     Route: 048
     Dates: start: 20070511, end: 20070518
  2. LEVAQUIN [Suspect]
     Indication: SINUSITIS
     Dosage: 500 MG QD ORALLY
     Route: 048
     Dates: start: 20070401, end: 20070414

REACTIONS (6)
  - CONFUSIONAL STATE [None]
  - DRUG HYPERSENSITIVITY [None]
  - HEADACHE [None]
  - HYPOAESTHESIA [None]
  - SYNCOPE [None]
  - TENDONITIS [None]
